FAERS Safety Report 5525298-8 (Version None)
Quarter: 2007Q4

REPORT INFORMATION
  Report Type: 
  Country: None (occurrence: None)
  Receive Date: 20071126
  Receipt Date: 20071116
  Transmission Date: 20080405
  Serious: Yes (Other)
  Sender: FDA-Public Use
  Company Number: HR-ROCHE-532228

PATIENT
  Age: 62 Year
  Sex: Female

DRUGS (2)
  1. BONIVA [Suspect]
     Indication: OSTEOPOROSIS
     Route: 048
     Dates: start: 20071024, end: 20071024
  2. IRUMED [Concomitant]
     Indication: HYPERTENSION
     Dosage: DOSING FREQUENCY: DAILY.
     Route: 048

REACTIONS (2)
  - BRADYCARDIA [None]
  - NAUSEA [None]
